FAERS Safety Report 16110852 (Version 1)
Quarter: 2019Q1

REPORT INFORMATION
  Report Type: Spontaneous
  Country: FR (occurrence: FR)
  Receive Date: 20190325
  Receipt Date: 20190325
  Transmission Date: 20190418
  Serious: Yes (Hospitalization)
  Sender: FDA-Public Use
  Company Number: FR-ACCORD-114765

PATIENT
  Age: 77 Year
  Sex: Female
  Weight: 87.5 kg

DRUGS (5)
  1. CAPECITABINE. [Concomitant]
     Active Substance: CAPECITABINE
     Indication: BILIARY NEOPLASM
     Route: 048
     Dates: start: 20181031, end: 20181115
  2. OXALIPLATIN. [Suspect]
     Active Substance: OXALIPLATIN
     Indication: BILIARY NEOPLASM
     Route: 042
     Dates: start: 20181030, end: 20181030
  3. XANAX [Concomitant]
     Active Substance: ALPRAZOLAM
     Indication: PROPHYLAXIS
     Dosage: STRENGTH 0.25 MG, SCORED TABLET
     Route: 048
     Dates: start: 20181030, end: 20181101
  4. CORTANCYL [Concomitant]
     Active Substance: PREDNISONE
     Indication: PROPHYLAXIS
     Route: 048
     Dates: start: 20181030, end: 20181101
  5. ZOPHREN [Concomitant]
     Active Substance: ONDANSETRON
     Indication: PROPHYLAXIS
     Route: 048
     Dates: start: 20181031, end: 20181101

REACTIONS (4)
  - Laryngospasm [Recovered/Resolved]
  - Acute respiratory distress syndrome [Recovered/Resolved]
  - Lip oedema [Recovered/Resolved]
  - Off label use [Unknown]

NARRATIVE: CASE EVENT DATE: 20181030
